FAERS Safety Report 9501057 (Version 1)
Quarter: 2013Q1

REPORT INFORMATION
  Report Type: Spontaneous
  Country: US (occurrence: None)
  Receive Date: 20130107
  Receipt Date: 20130107
  Transmission Date: 20140127
  Serious: No
  Sender: FDA-Public Use
  Company Number: PHEH2012US021346

PATIENT
  Age: 42 Year
  Sex: Male
  Weight: 81.2 kg

DRUGS (5)
  1. GILENYA [Suspect]
     Indication: MULTIPLE SCLEROSIS
     Route: 048
     Dates: start: 20121029, end: 20121109
  2. KLONOPIN (CLONAZEPAM) [Concomitant]
  3. PRAVACHOL (PRAVASTATIN SODIUM) [Concomitant]
  4. TIZANIDINE (TIZANIDINE) [Concomitant]
  5. LORTAB (HYDROCODONE BITARTRATE, PARACETAMOL) [Concomitant]

REACTIONS (3)
  - Somnolence [None]
  - Chest discomfort [None]
  - Dyspnoea [None]
